FAERS Safety Report 6973298-3 (Version None)
Quarter: 2010Q3

REPORT INFORMATION
  Report Type: 
  Country: None (occurrence: None)
  Receive Date: 20100909
  Receipt Date: 20100907
  Transmission Date: 20110219
  Serious: Yes (Death, Hospitalization, Other)
  Sender: FDA-Public Use
  Company Number: PHHY2010US31647

PATIENT
  Sex: Male
  Weight: 97 kg

DRUGS (10)
  1. EXJADE [Suspect]
     Indication: MYELODYSPLASTIC SYNDROME
     Dosage: 2500 MG DAILY
     Route: 048
     Dates: start: 20100204
  2. EXJADE [Suspect]
  3. ACETYLSALICYLIC ACID [Concomitant]
     Dosage: UNK
  4. CARBIDOPA + LEVODOPA [Concomitant]
  5. SIMVASTATIN [Concomitant]
  6. METRONIDAZOLE [Concomitant]
  7. FIBERCON (POLYCARBOPHIL CALCIUM) [Concomitant]
  8. CENTRUM [Concomitant]
  9. DOXYCYCLINE [Concomitant]
     Dosage: UNK
  10. AZITHROMYCIN [Concomitant]
     Dosage: UNK

REACTIONS (3)
  - DEATH [None]
  - NEUTROPHIL COUNT DECREASED [None]
  - PLATELET COUNT DECREASED [None]
